FAERS Safety Report 8087949-6 (Version None)
Quarter: 2012Q1

REPORT INFORMATION
  Report Type: 
  Country: None (occurrence: None)
  Receive Date: 20120130
  Receipt Date: 20120119
  Transmission Date: 20120608
  Serious: Yes (Other)
  Sender: FDA-Public Use
  Company Number: US-ASTRAZENECA-2012SE03854

PATIENT
  Age: 44 Year
  Sex: Male
  Weight: 104.3 kg

DRUGS (3)
  1. NEXIUM [Suspect]
     Indication: GASTROOESOPHAGEAL REFLUX DISEASE
     Route: 048
  2. HIGH BLOOD PRESSURE MEDICATION [Concomitant]
  3. NEXIUM [Suspect]
     Route: 048

REACTIONS (5)
  - GLAUCOMA [None]
  - BLOOD CHOLESTEROL INCREASED [None]
  - DRUG PRESCRIBING ERROR [None]
  - CARTILAGE INJURY [None]
  - ANXIETY [None]
